FAERS Safety Report 13265628 (Version 1)
Quarter: 2017Q1

REPORT INFORMATION
  Report Type: Spontaneous
  Country: US (occurrence: US)
  Receive Date: 20170223
  Receipt Date: 20170223
  Transmission Date: 20170428
  Serious: No
  Sender: FDA-Public Use
  Company Number: US-HQ SPECIALTY-US-2016INT000269

PATIENT

DRUGS (9)
  1. DOXIL [Suspect]
     Active Substance: DOXORUBICIN HYDROCHLORIDE
     Indication: BREAST CANCER
     Dosage: THREE ROUNDS
  2. DOXIL [Suspect]
     Active Substance: DOXORUBICIN HYDROCHLORIDE
     Indication: METASTASES TO OVARY
  3. TAXOL [Suspect]
     Active Substance: PACLITAXEL
     Indication: METASTASES TO OVARY
  4. DOXIL [Suspect]
     Active Substance: DOXORUBICIN HYDROCHLORIDE
     Indication: METASTASES TO BONE
  5. TAXOL [Suspect]
     Active Substance: PACLITAXEL
     Indication: BREAST CANCER
     Dosage: TWO ROUNDS
     Route: 042
  6. TAXOL [Suspect]
     Active Substance: PACLITAXEL
     Indication: METASTASES TO BONE
  7. CARBOPLATIN. [Suspect]
     Active Substance: CARBOPLATIN
     Indication: METASTASES TO OVARY
  8. CARBOPLATIN. [Suspect]
     Active Substance: CARBOPLATIN
     Indication: BREAST CANCER
     Dosage: TWO ROUNDS
     Route: 042
  9. CARBOPLATIN. [Suspect]
     Active Substance: CARBOPLATIN
     Indication: METASTASES TO BONE

REACTIONS (1)
  - Drug ineffective [Unknown]
